FAERS Safety Report 8104258-7 (Version None)
Quarter: 2012Q1

REPORT INFORMATION
  Report Type: 
  Country: None (occurrence: None)
  Receive Date: 20120130
  Receipt Date: 20120124
  Transmission Date: 20120608
  Serious: Yes (Other)
  Sender: FDA-Public Use
  Company Number: DE-BAYER-2012-007305

PATIENT
  Sex: Female

DRUGS (1)
  1. MIRENA [Suspect]

REACTIONS (2)
  - DEEP VEIN THROMBOSIS [None]
  - LOWER LIMB FRACTURE [None]
